FAERS Safety Report 13065902 (Version 2)
Quarter: 2016Q4

REPORT INFORMATION
  Report Type: Spontaneous
  Country: JP (occurrence: JP)
  Receive Date: 20161227
  Receipt Date: 20161228
  Transmission Date: 20170207
  Serious: Yes (Other)
  Sender: FDA-Public Use
  Company Number: JP-GLAXOSMITHKLINE-JP2016JPN187890

PATIENT
  Age: 54 Year
  Sex: Male

DRUGS (4)
  1. LAMICTAL [Suspect]
     Active Substance: LAMOTRIGINE
     Indication: BIPOLAR DISORDER
     Dosage: UNK
     Route: 048
     Dates: start: 20111119
  2. VALERIN [Concomitant]
     Active Substance: VALPROATE SODIUM
     Indication: BIPOLAR DISORDER
     Dosage: 600 MG, TID
  3. DEPAKENE [Concomitant]
     Active Substance: VALPROIC ACID
     Dosage: 600 MG, 1D
  4. LAMICTAL [Suspect]
     Active Substance: LAMOTRIGINE
     Dosage: 135 MG, QD
     Route: 048

REACTIONS (3)
  - Renal disorder [Unknown]
  - Hyperaldosteronism [Not Recovered/Not Resolved]
  - Renal impairment [Unknown]

NARRATIVE: CASE EVENT DATE: 201611
